FAERS Safety Report 4276243-7 (Version None)
Quarter: 2004Q1

REPORT INFORMATION
  Report Type: 
  Country: None (occurrence: None)
  Receive Date: 20040121
  Receipt Date: 20031022
  Transmission Date: 20041129
  Serious: No
  Sender: FDA-Public Use
  Company Number: US-GLAXOSMITHKLINE-A0431180A

PATIENT
  Age: 76 Year
  Sex: Female

DRUGS (3)
  1. VENTOLIN [Suspect]
     Indication: ASTHMA
     Dosage: 2PUFF EIGHT TIMES PER DAY
     Route: 055
     Dates: start: 20030901, end: 20030901
  2. VALIUM [Concomitant]
  3. NIACIN [Concomitant]

REACTIONS (3)
  - HEADACHE [None]
  - HEART RATE DECREASED [None]
  - PHARYNGOLARYNGEAL PAIN [None]
